FAERS Safety Report 7792299-9 (Version None)
Quarter: 2011Q4

REPORT INFORMATION
  Report Type: 
  Country: None (occurrence: None)
  Receive Date: 20111003
  Receipt Date: 20110927
  Transmission Date: 20120403
  Serious: Yes (Hospitalization, Other)
  Sender: FDA-Public Use
  Company Number: PHHY2010CA85904

PATIENT
  Sex: Female

DRUGS (3)
  1. ZANTAC [Concomitant]
  2. XANAX [Concomitant]
  3. ZOLEDRONOC ACID [Suspect]
     Indication: OSTEOPOROSIS
     Dosage: 5 MG, UNK
     Route: 042
     Dates: start: 20101116

REACTIONS (9)
  - ABDOMINAL PAIN UPPER [None]
  - BONE PAIN [None]
  - FALL [None]
  - OSTEOARTHRITIS [None]
  - LIGAMENT RUPTURE [None]
  - ARTHRALGIA [None]
  - LIGAMENT SPRAIN [None]
  - MUSCLE SPASMS [None]
  - JOINT SWELLING [None]
